FAERS Safety Report 16233211 (Version 1)
Quarter: 2019Q2

REPORT INFORMATION
  Report Type: Spontaneous
  Country: US (occurrence: US)
  Receive Date: 20190424
  Receipt Date: 20190424
  Transmission Date: 20190711
  Serious: No
  Sender: FDA-Public Use
  Company Number: US-PFIZER INC-2019166744

PATIENT
  Age: 56 Year
  Sex: Female
  Weight: 77.98 kg

DRUGS (1)
  1. ZYVOX [Suspect]
     Active Substance: LINEZOLID
     Indication: STAPHYLOCOCCAL INFECTION
     Dosage: 600 MG, 2X/DAY (TAKEN BY MOUTH EVERY 12 HOURS)
     Route: 048

REACTIONS (5)
  - Swelling [Unknown]
  - Rash [Recovering/Resolving]
  - Skin erosion [Unknown]
  - Fungal infection [Unknown]
  - Pruritus [Unknown]

NARRATIVE: CASE EVENT DATE: 20190414
